FAERS Safety Report 24906314 (Version 1)
Quarter: 2025Q1

REPORT INFORMATION
  Report Type: Spontaneous
  Country: FR (occurrence: FR)
  Receive Date: 20250130
  Receipt Date: 20250130
  Transmission Date: 20250409
  Serious: Yes (Life-Threatening, Hospitalization)
  Sender: OTSUKA
  Company Number: None

PATIENT
  Age: 31 Year
  Sex: Female
  Weight: 85.2 kg

DRUGS (2)
  1. ABILIFY [Suspect]
     Active Substance: ARIPIPRAZOLE
     Indication: Schizophrenia
     Dosage: 15 MG, QD
     Route: 048
     Dates: start: 20241122, end: 20241216
  2. ABILIFY MAINTENA [Suspect]
     Active Substance: ARIPIPRAZOLE
     Indication: Schizophrenia
     Route: 030
     Dates: start: 20241217, end: 20241217

REACTIONS (5)
  - Supraventricular tachyarrhythmia [Recovered/Resolved]
  - Vertigo [Not Recovered/Not Resolved]
  - Photopsia [Recovered/Resolved]
  - Bradycardia [Recovered/Resolved]
  - Headache [Recovered/Resolved]

NARRATIVE: CASE EVENT DATE: 20241226
